FAERS Safety Report 8229862-7 (Version None)
Quarter: 2012Q1

REPORT INFORMATION
  Report Type: 
  Country: None (occurrence: None)
  Receive Date: 20120323
  Receipt Date: 20120313
  Transmission Date: 20120608
  Serious: Yes (Other)
  Sender: FDA-Public Use
  Company Number: BR-AMGEN-BRASP2012017227

PATIENT
  Age: 63 Year
  Sex: Female
  Weight: 58 kg

DRUGS (3)
  1. ENBREL [Suspect]
     Indication: RHEUMATOID ARTHRITIS
     Dosage: 50 MG, WEEKLY
     Route: 058
     Dates: start: 20100401, end: 20120201
  2. VITAMIN C                          /00008001/ [Concomitant]
     Dosage: UNK
  3. PANTOPRAZOLE [Concomitant]
     Indication: GASTRIC DISORDER
     Dosage: UNK

REACTIONS (4)
  - HIATUS HERNIA [None]
  - BLOOD CHOLESTEROL INCREASED [None]
  - PNEUMONIA [None]
  - HYPERTENSION [None]
